FAERS Safety Report 9348484 (Version 2)
Quarter: 2013Q2

REPORT INFORMATION
  Report Type: Spontaneous
  Country: FR (occurrence: FR)
  Receive Date: 20130614
  Receipt Date: 20130628
  Transmission Date: 20140414
  Serious: Yes (Hospitalization, Other)
  Sender: FDA-Public Use
  Company Number: FR-TEVA-411455ISR

PATIENT
  Age: 62 Year
  Sex: Female

DRUGS (5)
  1. FUROSEMIDE TEVA 40 MG [Suspect]
     Indication: ASCITES
     Dosage: 40 MILLIGRAM DAILY; IN THE MORNING
  2. LASILIX [Suspect]
     Indication: HEPATIC CIRRHOSIS
     Route: 048
  3. NORFLOXACINE [Concomitant]
     Dosage: 400 MILLIGRAM DAILY;
     Dates: start: 201306
  4. NUREFLEX [Concomitant]
  5. ALDACTONE [Concomitant]
     Dosage: 75 MILLIGRAM DAILY;
     Dates: start: 201306

REACTIONS (4)
  - Ascites [Unknown]
  - Fatigue [Not Recovered/Not Resolved]
  - Oedema peripheral [Recovering/Resolving]
  - Platelet count decreased [Not Recovered/Not Resolved]
